FAERS Safety Report 7386625-2 (Version None)
Quarter: 2011Q1

REPORT INFORMATION
  Report Type: 
  Country: None (occurrence: None)
  Receive Date: 20110331
  Receipt Date: 20110322
  Transmission Date: 20110831
  Serious: Yes (Death)
  Sender: FDA-Public Use
  Company Number: CA-ROCHE-767413

PATIENT
  Sex: Male
  Weight: 82.6 kg

DRUGS (7)
  1. DOXITAB [Concomitant]
  2. PANTOLOC [Concomitant]
  3. ZOFRAN [Concomitant]
  4. LOVENOX [Concomitant]
  5. BEVACIZUMAB [Suspect]
     Indication: GLIOBLASTOMA
     Dosage: FORM: INFUSION
     Route: 042
     Dates: start: 20101125, end: 20110127
  6. DILANTIN [Concomitant]
  7. DECADRON [Concomitant]

REACTIONS (1)
  - DEATH [None]
